FAERS Safety Report 5534707-X (Version None)
Quarter: 2007Q4

REPORT INFORMATION
  Report Type: 
  Country: None (occurrence: None)
  Receive Date: 20071130
  Receipt Date: 20071114
  Transmission Date: 20080405
  Serious: Yes (Other)
  Sender: FDA-Public Use
  Company Number: L07-USA-06087-01

PATIENT
  Age: 37 Year
  Sex: Female

DRUGS (2)
  1. CITALOPRAM [Suspect]
     Dosage: 20 MG QD
  2. RIZATRIPTAN BENZOATE [Suspect]
     Dosage: 10 MG

REACTIONS (1)
  - SEROTONIN SYNDROME [None]
